FAERS Safety Report 6162418-9 (Version None)
Quarter: 2009Q2

REPORT INFORMATION
  Report Type: 
  Country: None (occurrence: None)
  Receive Date: 20090421
  Receipt Date: 20061227
  Transmission Date: 20091009
  Serious: No
  Sender: FDA-Public Use
  Company Number: US-SOLVAY-00206004235

PATIENT
  Age: 2641 Day
  Sex: Female

DRUGS (5)
  1. ASMANEX TWISTHALER [Concomitant]
     Indication: ASTHMA
     Dosage: DAILY DOSE:  UNKNOWN
     Route: 055
  2. ANDROGEL [Suspect]
     Indication: ACCIDENTAL EXPOSURE
     Dosage: DAILY DOSE: 5 GRAM(S)
     Route: 062
     Dates: start: 20050801
  3. ANDROGEL [Suspect]
     Dosage: DAILY DOSE: 5 GRAM(S)
     Route: 062
     Dates: start: 20061001
  4. SINGULAIR [Concomitant]
     Indication: ASTHMA
     Dosage: DAILY DOSE:  UNKNOWN
     Route: 048
  5. ZYRTEC [Concomitant]
     Indication: ASTHMA
     Dosage: DAILY DOSE:  UNKNOWN
     Route: 048

REACTIONS (1)
  - HIRSUTISM [None]
